FAERS Safety Report 12778357 (Version 1)
Quarter: 2016Q3

REPORT INFORMATION
  Report Type: Report from Study
  Country: US (occurrence: US)
  Receive Date: 20160926
  Receipt Date: 20160926
  Transmission Date: 20161109
  Serious: No
  Sender: FDA-Public Use
  Company Number: US-AMGEN-USASL2016120044

PATIENT
  Age: 60 Year
  Sex: Female

DRUGS (2)
  1. ENBREL [Suspect]
     Active Substance: ETANERCEPT
     Indication: TOXICITY TO VARIOUS AGENTS
     Dosage: UNK
     Route: 065
     Dates: start: 201604
  2. ENBREL [Suspect]
     Active Substance: ETANERCEPT
     Indication: RHEUMATOID ARTHRITIS
     Dosage: 50 MG, QWK
     Route: 065
     Dates: start: 20130508

REACTIONS (2)
  - Arthritis [Unknown]
  - Arthropathy [Unknown]

NARRATIVE: CASE EVENT DATE: 2016
